FAERS Safety Report 21513348 (Version 1)
Quarter: 2022Q4

REPORT INFORMATION
  Report Type: Spontaneous
  Country: US (occurrence: None)
  Receive Date: 20221027
  Receipt Date: 20221027
  Transmission Date: 20230112
  Serious: Yes (Other)
  Sender: FDA-Public Use
  Company Number: None

PATIENT
  Age: 38 Year
  Sex: Female
  Weight: 60.75 kg

DRUGS (2)
  1. NORETHINDRONE [Suspect]
     Active Substance: NORETHINDRONE
     Indication: Hormone level abnormal
     Dates: start: 20220914, end: 20220916
  2. NORETHINDRONE [Suspect]
     Active Substance: NORETHINDRONE
     Indication: Menstruation irregular

REACTIONS (3)
  - Seizure [None]
  - Headache [None]
  - Speech disorder [None]

NARRATIVE: CASE EVENT DATE: 20220915
